FAERS Safety Report 16303021 (Version 1)
Quarter: 2019Q2

REPORT INFORMATION
  Report Type: Spontaneous
  Country: US (occurrence: US)
  Receive Date: 20190513
  Receipt Date: 20190513
  Transmission Date: 20190711
  Serious: No
  Sender: FDA-Public Use
  Company Number: US-ASTRAZENECA-2019SE59229

PATIENT
  Sex: Female
  Weight: 104.3 kg

DRUGS (2)
  1. BYDUREON BCISE [Suspect]
     Active Substance: EXENATIDE
     Indication: TYPE 2 DIABETES MELLITUS
     Dosage: ONCE A WEEK
     Route: 058
     Dates: start: 2019
  2. BYDUREON [Suspect]
     Active Substance: EXENATIDE
     Indication: TYPE 2 DIABETES MELLITUS
     Dosage: ONCE A WEEK
     Route: 058

REACTIONS (10)
  - Renal pain [Unknown]
  - Dysphagia [Unknown]
  - Hypoacusis [Unknown]
  - Blood potassium decreased [Unknown]
  - Device leakage [Unknown]
  - Injection site mass [Unknown]
  - Thyroid mass [Unknown]
  - Body height decreased [Unknown]
  - Injection site pain [Unknown]
  - Device issue [Unknown]
